FAERS Safety Report 7107379-0 (Version None)
Quarter: 2010Q4

REPORT INFORMATION
  Report Type: 
  Country: None (occurrence: None)
  Receive Date: 20101111
  Receipt Date: 20101111
  Transmission Date: 20110411
  Serious: Yes (Other)
  Sender: FDA-Public Use
  Company Number: None

PATIENT
  Sex: Female
  Weight: 65.7716 kg

DRUGS (1)
  1. LUNESTA [Suspect]
     Indication: INSOMNIA
     Dosage: 1 AT BEDTIME
     Dates: start: 20100801, end: 20101001

REACTIONS (3)
  - CONTUSION [None]
  - MEMORY IMPAIRMENT [None]
  - SOMNAMBULISM [None]
